FAERS Safety Report 12803962 (Version 1)
Quarter: 2016Q4

REPORT INFORMATION
  Report Type: Report from Study
  Country: FR (occurrence: FR)
  Receive Date: 20161003
  Receipt Date: 20161003
  Transmission Date: 20170207
  Serious: Yes (Hospitalization, Other)
  Sender: FDA-Public Use
  Company Number: FR-PFIZER INC-2016448466

PATIENT
  Age: 64 Year
  Sex: Female
  Weight: 57 kg

DRUGS (1)
  1. ATGAM [Suspect]
     Active Substance: EQUINE THYMOCYTE IMMUNE GLOBULIN
     Indication: APLASTIC ANAEMIA
     Dosage: 40 MG/KG, DAILY
     Route: 042
     Dates: start: 20160121, end: 20160124

REACTIONS (9)
  - Rash maculo-papular [Recovered/Resolved]
  - Febrile bone marrow aplasia [Recovered/Resolved]
  - Insomnia [Recovering/Resolving]
  - Pyrexia [Recovered/Resolved]
  - Eyelid pain [Recovered/Resolved]
  - Pruritus [Recovered/Resolved]
  - Diarrhoea [Recovered/Resolved]
  - Erythrosis [Recovered/Resolved]
  - Clostridium difficile infection [Recovered/Resolved]

NARRATIVE: CASE EVENT DATE: 20160201
